FAERS Safety Report 5855891-4 (Version None)
Quarter: 2008Q3

REPORT INFORMATION
  Report Type: 
  Country: None (occurrence: None)
  Receive Date: 20080821
  Receipt Date: 20080821
  Transmission Date: 20090109
  Serious: Yes (Other)
  Sender: FDA-Public Use
  Company Number: None

PATIENT
  Age: 44 Year
  Sex: Male
  Weight: 65.7716 kg

DRUGS (6)
  1. CEPHALEXIN [Suspect]
     Indication: CELLULITIS
     Dosage: 500 MG 3 PO
     Route: 048
     Dates: start: 20080811, end: 20080818
  2. SULFAMETHOXAZOLE/TRIMETHOPRIM 800 MG/160 MG INTERPHARM [Suspect]
     Indication: CELLULITIS
     Dosage: 800 MG/160 MG 2 PO
     Route: 048
     Dates: start: 20080811, end: 20080818
  3. OTC TYLENOL [Concomitant]
  4. ADVIL PRN [Concomitant]
  5. SERTRALINE [Concomitant]
  6. ENALAPRIL MALEATE [Concomitant]

REACTIONS (5)
  - ARTHRALGIA [None]
  - ASTHENIA [None]
  - NEPHRITIS INTERSTITIAL [None]
  - RENAL FAILURE ACUTE [None]
  - URTICARIA [None]
